FAERS Safety Report 18824098 (Version 2)
Quarter: 2021Q1

REPORT INFORMATION
  Report Type: Report from Study
  Country: US (occurrence: US)
  Receive Date: 20210202
  Receipt Date: 20210205
  Transmission Date: 20210419
  Serious: Yes (Hospitalization)
  Sender: FDA-Public Use
  Company Number: US-JNJFOC-20210105239

PATIENT
  Age: 70 Year
  Sex: Female
  Weight: 64.47 kg

DRUGS (3)
  1. MACITENTAN [Suspect]
     Active Substance: MACITENTAN
     Indication: PULMONARY ARTERIAL HYPERTENSION
     Route: 048
     Dates: start: 20201224, end: 20210107
  2. TYVASO [Concomitant]
     Active Substance: TREPROSTINIL
  3. MACITENTAN [Suspect]
     Active Substance: MACITENTAN
     Route: 048
     Dates: start: 2021

REACTIONS (7)
  - Fluid retention [Recovering/Resolving]
  - Pruritus [Unknown]
  - Cough [Unknown]
  - Ascites [Unknown]
  - Headache [Unknown]
  - Pain [Unknown]
  - Liver disorder [Unknown]

NARRATIVE: CASE EVENT DATE: 20201230
